FAERS Safety Report 10475989 (Version 3)
Quarter: 2014Q4

REPORT INFORMATION
  Report Type: Spontaneous
  Country: FI (occurrence: FI)
  Receive Date: 20140925
  Receipt Date: 20141022
  Transmission Date: 20150528
  Serious: Yes (Other)
  Sender: FDA-Public Use
  Company Number: FI-B.I. PHARMACEUTICALS,INC./RIDGEFIELD-2014-BI-44887SF

PATIENT
  Age: 68 Year
  Sex: Female

DRUGS (9)
  1. SPESICOR [Concomitant]
     Indication: TACHYCARDIA
     Route: 065
  2. ASA [Concomitant]
     Active Substance: ASPIRIN
     Indication: TRANSIENT ISCHAEMIC ATTACK
     Route: 065
  3. MICARDISPLUS [Suspect]
     Active Substance: HYDROCHLOROTHIAZIDE\TELMISARTAN
     Indication: CARDIOVASCULAR EVENT PROPHYLAXIS
     Dosage: DOSE PER APPLICATION AND DAILY DOSE: 40/12.5MG
     Route: 065
     Dates: start: 200801, end: 201006
  4. MICARDIS [Suspect]
     Active Substance: TELMISARTAN
     Indication: PRODUCT USED FOR UNKNOWN INDICATION
     Route: 065
     Dates: start: 201006
  5. PARATABS [Concomitant]
     Indication: PRODUCT USED FOR UNKNOWN INDICATION
     Route: 065
  6. MICARDISPLUS [Suspect]
     Active Substance: HYDROCHLOROTHIAZIDE\TELMISARTAN
     Indication: DIABETES PROPHYLAXIS
  7. DINIT [Concomitant]
     Active Substance: ISOSORBIDE DINITRATE
     Indication: PRODUCT USED FOR UNKNOWN INDICATION
     Route: 065
  8. PRIMASPAN [Concomitant]
     Indication: PRODUCT USED FOR UNKNOWN INDICATION
     Route: 065
  9. HYDREX SEMI [Concomitant]
     Indication: PRODUCT USED FOR UNKNOWN INDICATION
     Route: 065

REACTIONS (28)
  - Musculoskeletal pain [Unknown]
  - Oropharyngeal pain [Unknown]
  - Dizziness [Unknown]
  - Abdominal pain [Unknown]
  - Asthenia [Unknown]
  - Pain in extremity [Unknown]
  - Interstitial lung disease [Unknown]
  - Ocular discomfort [Unknown]
  - Sjogren^s syndrome [Unknown]
  - Hypotension [Unknown]
  - Localised oedema [Unknown]
  - Dry mouth [Unknown]
  - Off label use [Unknown]
  - Visual impairment [Unknown]
  - Hyperhidrosis [Unknown]
  - Muscle spasms [Unknown]
  - Pain [Unknown]
  - Oral disorder [Unknown]
  - Myalgia [Unknown]
  - Upper respiratory tract infection [Unknown]
  - Tachycardia [Unknown]
  - Dyspnoea [Unknown]
  - Cough [Unknown]
  - Diarrhoea [Unknown]
  - Urinary tract infection [Unknown]
  - Abdominal discomfort [Unknown]
  - Face oedema [Unknown]
  - Arthralgia [Unknown]

NARRATIVE: CASE EVENT DATE: 200801
